FAERS Safety Report 8421937-2 (Version None)
Quarter: 2012Q2

REPORT INFORMATION
  Report Type: 
  Country: None (occurrence: None)
  Receive Date: 20120608
  Receipt Date: 20120601
  Transmission Date: 20120825
  Serious: Yes (Other)
  Sender: FDA-Public Use
  Company Number: PHHY2012JP047221

PATIENT
  Age: 68 Year
  Sex: Female

DRUGS (2)
  1. PREDNISOLONE [Concomitant]
     Dosage: 50 MG, UNK
  2. METHYLPREDNISOLONE [Suspect]
     Dosage: PULSE THERAPY 1 G EVERY 24 HOUR FOR 3 DAYS
     Route: 042

REACTIONS (2)
  - DISSEMINATED INTRAVASCULAR COAGULATION [None]
  - PANCREATITIS ACUTE [None]
